FAERS Safety Report 9671533 (Version 1)
Quarter: 2013Q4

REPORT INFORMATION
  Report Type: Spontaneous
  Country: US (occurrence: US)
  Receive Date: 20131106
  Receipt Date: 20131106
  Transmission Date: 20140711
  Serious: Yes (Other)
  Sender: FDA-Public Use
  Company Number: US-PFIZER INC-2013315390

PATIENT
  Age: 58 Year
  Sex: Female
  Weight: 62.59 kg

DRUGS (2)
  1. CELEBREX [Suspect]
     Indication: ARTHRALGIA
     Dosage: 200 MG, DAILY
  2. MELOXICAM [Suspect]
     Indication: ARTHRALGIA
     Dosage: 15 MG, DAILY
     Dates: start: 2013, end: 20131102

REACTIONS (7)
  - Inguinal hernia [Unknown]
  - Finger deformity [Unknown]
  - Musculoskeletal stiffness [Unknown]
  - Memory impairment [Unknown]
  - Feeling of body temperature change [Unknown]
  - Pruritus [Unknown]
  - Arthralgia [Unknown]
